FAERS Safety Report 13730496 (Version 2)
Quarter: 2020Q3

REPORT INFORMATION
  Report Type: Report from Study
  Country: US (occurrence: US)
  Receive Date: 20170707
  Receipt Date: 20180409
  Transmission Date: 20201104
  Serious: No
  Sender: FDA-Public Use
  Company Number: US-JNJFOC-20170701805

PATIENT
  Age: 63 Year
  Sex: Female
  Weight: 47 kg

DRUGS (4)
  1. DOXIL [Suspect]
     Active Substance: DOXORUBICIN HYDROCHLORIDE
     Indication: OVARIAN CANCER
     Route: 042
     Dates: start: 20170329, end: 20170516
  2. TRABECTEDIN [Suspect]
     Active Substance: TRABECTEDIN
     Route: 042
  3. DOXIL [Suspect]
     Active Substance: DOXORUBICIN HYDROCHLORIDE
     Route: 042
  4. TRABECTEDIN [Suspect]
     Active Substance: TRABECTEDIN
     Indication: OVARIAN CANCER
     Route: 042
     Dates: start: 20170329, end: 20170516

REACTIONS (1)
  - Failure to thrive [Recovered/Resolved]

NARRATIVE: CASE EVENT DATE: 20170519
